FAERS Safety Report 5143904-7 (Version None)
Quarter: 2006Q4

REPORT INFORMATION
  Report Type: 
  Country: None (occurrence: None)
  Receive Date: 20061106
  Receipt Date: 20061025
  Transmission Date: 20070319
  Serious: Yes (Hospitalization)
  Sender: FDA-Public Use
  Company Number: SEWYE332225OCT06

PATIENT
  Sex: Female

DRUGS (16)
  1. ENBREL [Suspect]
     Indication: RHEUMATOID ARTHRITIS
     Route: 058
     Dates: start: 20060612, end: 20060704
  2. LANSOPRAZOLE [Concomitant]
     Route: 048
  3. SIMVASTATIN [Concomitant]
     Route: 048
  4. ALBYL-E [Concomitant]
     Route: 048
  5. ZOPICLONE [Concomitant]
     Route: 048
  6. SAROTEX [Concomitant]
     Route: 048
  7. FOLIC ACID [Concomitant]
     Route: 048
  8. SALMETEROL/FLUTICASONE [Concomitant]
  9. CALCIGRAN [Concomitant]
     Route: 048
  10. KEFLEX [Concomitant]
     Indication: LOCALISED INFECTION
     Route: 048
     Dates: start: 20060526, end: 20060529
  11. ATROVENT [Concomitant]
     Route: 055
  12. DALACIN [Concomitant]
     Indication: LOCALISED INFECTION
     Route: 048
     Dates: start: 20060529, end: 20060606
  13. ALENDRONIC ACID [Concomitant]
     Route: 048
  14. OXYCONTIN [Concomitant]
     Dosage: 5 MG AS NECESSARY
     Route: 048
  15. METHOTREXATE [Concomitant]
     Route: 048
  16. VENTOLIN [Concomitant]
     Dosage: 1-2 INHALATIONS UP TO 4 TIMES DAILY AS NECESSARY
     Route: 055

REACTIONS (4)
  - IMPETIGO [None]
  - PUSTULAR PSORIASIS [None]
  - RASH PUSTULAR [None]
  - SUBCORNEAL PUSTULAR DERMATOSIS [None]
